FAERS Safety Report 25388205 (Version 1)
Quarter: 2025Q2

REPORT INFORMATION
  Report Type: Spontaneous
  Country: US (occurrence: US)
  Receive Date: 20250603
  Receipt Date: 20250603
  Transmission Date: 20250717
  Serious: Yes (Other)
  Sender: ALKEM
  Company Number: US-ALKEM LABORATORIES LIMITED-US-ALKEM-2025-02085

PATIENT
  Age: 83 Year
  Sex: Male

DRUGS (1)
  1. VANCOMYCIN [Suspect]
     Active Substance: VANCOMYCIN
     Indication: Endocarditis staphylococcal
     Dosage: 15 MILLIGRAM/KILOGRAM, QD (ADJUSTED DOSE)
     Route: 065

REACTIONS (1)
  - Cutaneous vasculitis [Recovered/Resolved]
